FAERS Safety Report 7209842-0 (Version None)
Quarter: 2011Q1

REPORT INFORMATION
  Report Type: 
  Country: None (occurrence: None)
  Receive Date: 20110104
  Receipt Date: 20101227
  Transmission Date: 20110831
  Serious: No
  Sender: FDA-Public Use
  Company Number: US-ROXANE LABORATORIES, INC.-2010-RO-01466RO

PATIENT
  Sex: Female

DRUGS (2)
  1. LEVOXYL [Concomitant]
     Indication: HYPOTHYROIDISM
  2. ZALEPLON [Suspect]
     Indication: INSOMNIA
     Dosage: 10 MG
     Route: 048
     Dates: start: 20101026

REACTIONS (1)
  - DRUG INEFFECTIVE [None]
